FAERS Safety Report 12758624 (Version 2)
Quarter: 2017Q1

REPORT INFORMATION
  Report Type: Spontaneous
  Country: JP (occurrence: JP)
  Receive Date: 20160919
  Receipt Date: 20170121
  Transmission Date: 20170428
  Serious: No
  Sender: FDA-Public Use
  Company Number: JP-AMGEN-JPNSP2016126622

PATIENT
  Age: 83 Year
  Sex: Female
  Weight: 50 kg

DRUGS (13)
  1. XYZAL [Concomitant]
     Active Substance: LEVOCETIRIZINE DIHYDROCHLORIDE
     Indication: PRURITUS
     Dosage: 5 MG, QD
     Route: 048
     Dates: start: 20160725, end: 20160807
  2. ROMIPLATE [Suspect]
     Active Substance: ROMIPLOSTIM
     Dosage: 100 MUG, QWK
     Route: 058
     Dates: start: 20160729, end: 20160729
  3. ROMIPLATE [Suspect]
     Active Substance: ROMIPLOSTIM
     Dosage: 250 MUG, QWK
     Route: 058
     Dates: start: 20160819, end: 20160909
  4. ALLELOCK [Concomitant]
     Active Substance: OLOPATADINE HYDROCHLORIDE
     Indication: PRURITUS
     Dosage: 10 MG, BID
     Route: 048
     Dates: start: 20160722, end: 20160724
  5. PANTOSIN [Concomitant]
     Active Substance: PANTETHINE
     Indication: CONSTIPATION
     Dosage: 600 MG, TID
     Route: 048
  6. PREDONINE [Concomitant]
     Active Substance: PREDNISOLONE
     Indication: IMMUNE THROMBOCYTOPENIC PURPURA
     Dosage: 25 MG, QD
     Route: 048
     Dates: start: 20160725
  7. ROMIPLATE [Suspect]
     Active Substance: ROMIPLOSTIM
     Dosage: 150 MUG, QWK
     Route: 058
     Dates: start: 20160805, end: 20160805
  8. TALION [Concomitant]
     Active Substance: BEPOTASTINE
     Indication: PRURITUS
     Dosage: 40 MG, BID
     Route: 048
     Dates: start: 20160725, end: 20160807
  9. INDERAL [Concomitant]
     Active Substance: PROPRANOLOL HYDROCHLORIDE
     Indication: ATRIAL FIBRILLATION
     Dosage: 10 MG, QD
     Route: 048
  10. TAKECAB [Concomitant]
     Active Substance: VONOPRAZAN FUMURATE
     Indication: GASTRITIS
     Dosage: 10 MG, QD
     Route: 048
  11. ROMIPLATE [Suspect]
     Active Substance: ROMIPLOSTIM
     Dosage: 50 MUG, QWK
     Route: 058
     Dates: start: 20160722, end: 20160722
  12. ROMIPLATE [Suspect]
     Active Substance: ROMIPLOSTIM
     Dosage: 200 MUG, QWK
     Route: 058
     Dates: start: 20160812, end: 20160812
  13. ROMIPLATE [Suspect]
     Active Substance: ROMIPLOSTIM
     Indication: IMMUNE THROMBOCYTOPENIC PURPURA
     Dosage: 250 MUG, UNK
     Route: 058
     Dates: start: 20160727

REACTIONS (1)
  - Palmar erythema [Recovered/Resolved]

NARRATIVE: CASE EVENT DATE: 20160902
